FAERS Safety Report 16899466 (Version 3)
Quarter: 2021Q2

REPORT INFORMATION
  Report Type: Spontaneous
  Country: US (occurrence: US)
  Receive Date: 20191009
  Receipt Date: 20210513
  Transmission Date: 20210716
  Serious: Yes (Hospitalization, Congenital Anomaly)
  Sender: FDA-Public Use
  Company Number: US-PFIZER INC-2019430926

PATIENT
  Sex: Male
  Weight: 2.52 kg

DRUGS (1)
  1. METHOTREXATE SODIUM. [Suspect]
     Active Substance: METHOTREXATE SODIUM
     Indication: ABORTION INDUCED
     Dosage: UNK
     Route: 064

REACTIONS (7)
  - Clinodactyly [Unknown]
  - Craniosynostosis [Unknown]
  - Pyelocaliectasis [Unknown]
  - Maternal exposure during pregnancy [Unknown]
  - Cervical spinal stenosis [Unknown]
  - Synostosis [Unknown]
  - Talipes [Unknown]
